FAERS Safety Report 6434860-X (Version None)
Quarter: 2009Q4

REPORT INFORMATION
  Report Type: 
  Country: None (occurrence: None)
  Receive Date: 20091110
  Receipt Date: 20091102
  Transmission Date: 20100525
  Serious: Yes (Other)
  Sender: FDA-Public Use
  Company Number: ZA-TEVA-213863ISR

PATIENT
  Age: 32 Year
  Sex: Male

DRUGS (3)
  1. BLEOMYCIN SULFATE [Suspect]
     Indication: GERM CELL CANCER METASTATIC
  2. CISPLATIN [Suspect]
     Indication: GERM CELL CANCER METASTATIC
  3. ETOPOSIDE [Suspect]
     Indication: GERM CELL CANCER METASTATIC

REACTIONS (1)
  - INTESTINAL PERFORATION [None]
